FAERS Safety Report 24243127 (Version 1)
Quarter: 2024Q3

REPORT INFORMATION
  Report Type: Spontaneous
  Country: CN (occurrence: CN)
  Receive Date: 20240823
  Receipt Date: 20240823
  Transmission Date: 20241016
  Serious: Yes (Disabling)
  Sender: ROCHE
  Company Number: CN-CHEPLA-2024010729

PATIENT
  Age: 75 Year
  Sex: Female

DRUGS (8)
  1. XELODA [Suspect]
     Active Substance: CAPECITABINE
     Indication: Rectal cancer
     Dosage: 1.5G BID D1-14. COMPLETED FOUR CYCLES. APPROVAL NO. GYZZ H20073024
     Route: 048
     Dates: start: 20240712, end: 20240725
  2. XELODA [Suspect]
     Active Substance: CAPECITABINE
     Dosage: 1.5G BID D1-14. COMPLETED FOUR CYCLES. APPROVAL NO. GYZZ H20073024
     Route: 048
     Dates: start: 20240501, end: 20240501
  3. XELODA [Suspect]
     Active Substance: CAPECITABINE
     Dosage: 1.5G BID D1-14. COMPLETED FOUR CYCLES. APPROVAL NO. GYZZ H20073024
     Route: 048
     Dates: start: 20240523, end: 20240523
  4. XELODA [Suspect]
     Active Substance: CAPECITABINE
     Dosage: 1.5G BID D1-14. COMPLETED FOUR CYCLES. APPROVAL NO. GYZZ H20073024
     Route: 048
     Dates: start: 20240618, end: 20240618
  5. BEVACIZUMAB [Suspect]
     Active Substance: BEVACIZUMAB
     Indication: Rectal cancer
     Dosage: 4 CYCLES OF NS250ML + BEVACIZUMAB 500MG D1 INTRAVENOUS DRIP. APPROVAL NO. GYZZ S20190040
     Route: 042
     Dates: start: 20240712, end: 20240712
  6. BEVACIZUMAB [Suspect]
     Active Substance: BEVACIZUMAB
     Dosage: 4 CYCLES OF NS250ML + BEVACIZUMAB 500MG D1 INTRAVENOUS DRIP. APPROVAL NO. GYZZ S20190040
     Route: 042
     Dates: start: 20240501, end: 20240501
  7. BEVACIZUMAB [Suspect]
     Active Substance: BEVACIZUMAB
     Dosage: 4 CYCLES OF NS250ML + BEVACIZUMAB 500MG D1 INTRAVENOUS DRIP. APPROVAL NO. GYZZ S20190040
     Route: 042
     Dates: start: 20240523, end: 20240523
  8. BEVACIZUMAB [Suspect]
     Active Substance: BEVACIZUMAB
     Dosage: 4 CYCLES OF NS250ML + BEVACIZUMAB 500MG D1 INTRAVENOUS DRIP. APPROVAL NO. GYZZ S20190040
     Route: 042
     Dates: start: 20240618, end: 20240618

REACTIONS (1)
  - Myelosuppression [Recovering/Resolving]

NARRATIVE: CASE EVENT DATE: 20240804
